FAERS Safety Report 21812942 (Version 1)
Quarter: 2023Q1

REPORT INFORMATION
  Report Type: Spontaneous
  Country: CA (occurrence: CA)
  Receive Date: 20230103
  Receipt Date: 20230103
  Transmission Date: 20230417
  Serious: Yes (Death, Hospitalization, Other)
  Sender: FDA-Public Use
  Company Number: CA-MYLANLABS-2022M1148934

PATIENT
  Age: 27 Year
  Sex: Female
  Weight: 32 kg

DRUGS (2)
  1. LAMOTRIGINE [Suspect]
     Active Substance: LAMOTRIGINE
     Indication: Epilepsy
     Dosage: 12 MILLIGRAM, QD
     Route: 048
  2. VALPROIC ACID [Suspect]
     Active Substance: VALPROIC ACID
     Indication: Epilepsy
     Dosage: 250 MILLIGRAM, TID (750 QD)
     Route: 048

REACTIONS (2)
  - Pneumonia [Fatal]
  - Stevens-Johnson syndrome [Fatal]
